FAERS Safety Report 7562539-X (Version None)
Quarter: 2011Q2

REPORT INFORMATION
  Report Type: 
  Country: None (occurrence: None)
  Receive Date: 20110614
  Receipt Date: 20110606
  Transmission Date: 20111010
  Serious: Yes (Other)
  Sender: FDA-Public Use
  Company Number: 2011SP026166

PATIENT
  Sex: Female

DRUGS (1)
  1. NASONEX [Suspect]
     Indication: PRODUCT USED FOR UNKNOWN INDICATION
     Dosage: 2 DF; QD; NAS
     Route: 045
     Dates: start: 20060101

REACTIONS (2)
  - PHARYNGEAL OEDEMA [None]
  - NASAL CONGESTION [None]
